FAERS Safety Report 16257706 (Version 1)
Quarter: 2019Q2

REPORT INFORMATION
  Report Type: Spontaneous
  Country: US (occurrence: US)
  Receive Date: 20190430
  Receipt Date: 20190430
  Transmission Date: 20190711
  Serious: Yes (Life-Threatening, Hospitalization, Other)
  Sender: FDA-Public Use
  Company Number: US-ELI_LILLY_AND_COMPANY-US201904015350

PATIENT
  Age: 28 Year
  Sex: Male

DRUGS (3)
  1. TRENBOLONE [Suspect]
     Active Substance: TRENBOLONE
     Indication: STEROID THERAPY
     Dosage: UNK, UNKNOWN
     Route: 065
  2. TESTOSTERONE. [Suspect]
     Active Substance: TESTOSTERONE
     Indication: STEROID THERAPY
     Dosage: UNK, UNKNOWN
     Route: 065
  3. CLENBUTEROL [Suspect]
     Active Substance: CLENBUTEROL
     Indication: STEROID THERAPY
     Dosage: UNK, UNKNOWN
     Route: 065

REACTIONS (3)
  - Hyperthyroidism [Recovered/Resolved]
  - Pulmonary oedema [Unknown]
  - Cardiomyopathy [Recovered/Resolved]
